FAERS Safety Report 5725384-3 (Version None)
Quarter: 2008Q2

REPORT INFORMATION
  Report Type: 
  Country: None (occurrence: None)
  Receive Date: 20080501
  Receipt Date: 20080421
  Transmission Date: 20081010
  Serious: Yes (Other)
  Sender: FDA-Public Use
  Company Number: CA-PFIZER INC-2008036368

PATIENT
  Age: 49 Year
  Sex: Male

DRUGS (2)
  1. CHAMPIX [Suspect]
     Route: 048
  2. AMITRIPTLINE HCL [Concomitant]

REACTIONS (10)
  - AGGRESSION [None]
  - ANGER [None]
  - CRYING [None]
  - DISTURBANCE IN ATTENTION [None]
  - FEELING ABNORMAL [None]
  - FEELING DRUNK [None]
  - FEELING JITTERY [None]
  - MALAISE [None]
  - MENTAL DISORDER [None]
  - PERSONALITY CHANGE [None]
